FAERS Safety Report 9009090 (Version 4)
Quarter: 2014Q4

REPORT INFORMATION
  Report Type: Spontaneous
  Country: US (occurrence: US)
  Receive Date: 20130111
  Receipt Date: 20141003
  Transmission Date: 20150529
  Serious: Yes (Other)
  Sender: FDA-Public Use
  Company Number: US-ASTRAZENECA-2012SE79642

PATIENT
  Age: 81 Year
  Sex: Female

DRUGS (11)
  1. NOLVADEX [Suspect]
     Active Substance: TAMOXIFEN CITRATE
     Indication: BREAST CANCER
     Route: 048
     Dates: start: 2007
  2. TOPROL XL [Suspect]
     Active Substance: METOPROLOL SUCCINATE
     Route: 048
  3. VITAMIN D [Concomitant]
     Active Substance: CHOLECALCIFEROL
  4. RAMIPRIL. [Concomitant]
     Active Substance: RAMIPRIL
  5. ARIMIDEX [Suspect]
     Active Substance: ANASTROZOLE
     Dosage: ANASTROZOLE
     Route: 048
  6. SYNTHROID [Concomitant]
     Active Substance: LEVOTHYROXINE SODIUM
  7. ARIMIDEX [Suspect]
     Active Substance: ANASTROZOLE
     Route: 048
  8. ZETIA [Concomitant]
     Active Substance: EZETIMIBE
  9. MULTIVITAMIN [Concomitant]
     Active Substance: VITAMINS
  10. BABY ASPIRIN [Concomitant]
     Active Substance: ASPIRIN
  11. SELENIUM [Concomitant]
     Active Substance: SELENIUM

REACTIONS (3)
  - Adverse drug reaction [Unknown]
  - Breast cancer recurrent [Unknown]
  - Malaise [Unknown]
